FAERS Safety Report 12547420 (Version 2)
Quarter: 2016Q3

REPORT INFORMATION
  Report Type: Spontaneous
  Country: ES (occurrence: ES)
  Receive Date: 20160711
  Receipt Date: 20160722
  Transmission Date: 20161109
  Serious: Yes (Other)
  Sender: FDA-Public Use
  Company Number: ES-AMGEN-ESPSP2016088500

PATIENT
  Age: 68 Year
  Sex: Female

DRUGS (3)
  1. ENBREL [Suspect]
     Active Substance: ETANERCEPT
     Indication: PSORIATIC ARTHROPATHY
     Dosage: 50 MG, WEEKLY
     Route: 058
     Dates: start: 2004
  2. TIRODRIL [Concomitant]
     Active Substance: METHIMAZOLE
     Indication: GOITRE
     Dosage: UNK
  3. METOJECT [Concomitant]
     Active Substance: METHOTREXATE SODIUM
     Indication: PSORIATIC ARTHROPATHY
     Dosage: UNK, WEEKLY
     Route: 058
     Dates: start: 2004

REACTIONS (4)
  - Iron deficiency anaemia [Recovering/Resolving]
  - Injection site pain [Recovering/Resolving]
  - Bone marrow failure [Unknown]
  - Injection site haematoma [Recovered/Resolved]
